FAERS Safety Report 6760946-6 (Version None)
Quarter: 2010Q2

REPORT INFORMATION
  Report Type: 
  Country: None (occurrence: None)
  Receive Date: 20100608
  Receipt Date: 20100526
  Transmission Date: 20101027
  Serious: No
  Sender: FDA-Public Use
  Company Number: US-B.I. PHARMACEUTICALS,INC./RIDGEFIELD-2010-BP-04926BP

PATIENT
  Age: 78 Year
  Sex: Female
  Weight: 84.37 kg

DRUGS (6)
  1. SPIRIVA [Suspect]
     Indication: CHRONIC OBSTRUCTIVE PULMONARY DISEASE
     Dosage: 18 MCG
     Route: 055
     Dates: start: 20100423, end: 20100428
  2. SIMVASTATIN [Concomitant]
     Dosage: 100 MG
  3. METFORMIN HCL [Concomitant]
     Dosage: 2 G
  4. SERTRALINE HCL [Concomitant]
     Dosage: 50 MG
  5. LEVOTHYROXINE SODIUM [Concomitant]
     Dosage: 75 MCG
  6. LISINOPRIL [Concomitant]
     Dosage: 30 MG

REACTIONS (3)
  - OROPHARYNGEAL PAIN [None]
  - SWOLLEN TONGUE [None]
  - TONGUE BITING [None]
